FAERS Safety Report 10932977 (Version 4)
Quarter: 2016Q2

REPORT INFORMATION
  Report Type: Spontaneous
  Country: FR (occurrence: FR)
  Receive Date: 20150320
  Receipt Date: 20160617
  Transmission Date: 20160815
  Serious: Yes (Hospitalization, Other)
  Sender: FDA-Public Use
  Company Number: FR-009507513-1503FRA007763

PATIENT
  Age: 26 Year
  Sex: Female

DRUGS (3)
  1. NEXPLANON [Suspect]
     Active Substance: ETONOGESTREL
     Indication: CONTRACEPTION
     Dosage: LEFT ARM
     Route: 058
     Dates: start: 201410, end: 201503
  2. CORTANCYL [Concomitant]
     Active Substance: PREDNISONE
  3. METHOTREXATE [Concomitant]
     Active Substance: METHOTREXATE
     Indication: AUTOIMMUNE DISORDER
     Dosage: 20 MG, QD
     Dates: start: 201407

REACTIONS (2)
  - Device dislocation [Recovered/Resolved]
  - Complication associated with device [Recovered/Resolved]

NARRATIVE: CASE EVENT DATE: 201410
